FAERS Safety Report 5111202-3 (Version None)
Quarter: 2006Q3

REPORT INFORMATION
  Report Type: 
  Country: None (occurrence: None)
  Receive Date: 20060731
  Receipt Date: 20060510
  Transmission Date: 20061208
  Serious: No
  Sender: FDA-Public Use
  Company Number: 2006PV013642

PATIENT
  Age: 62 Year
  Sex: Female
  Weight: 95.2554 kg

DRUGS (6)
  1. BYETTA [Suspect]
     Indication: DIABETES MELLITUS NON-INSULIN-DEPENDENT
     Dosage: SEE IMAGE
     Route: 058
     Dates: start: 20060410, end: 20060502
  2. BYETTA [Suspect]
     Indication: DIABETES MELLITUS NON-INSULIN-DEPENDENT
     Dosage: SEE IMAGE
     Route: 058
     Dates: start: 20060503, end: 20060507
  3. BYETTA [Suspect]
     Indication: DIABETES MELLITUS NON-INSULIN-DEPENDENT
     Dosage: SEE IMAGE
     Route: 058
     Dates: start: 20060508
  4. METFORMIN HCL [Concomitant]
  5. GLIPIZIDE [Concomitant]
  6. LANTUS [Concomitant]

REACTIONS (7)
  - ASTHENIA [None]
  - BLOOD GLUCOSE INCREASED [None]
  - CHILLS [None]
  - FEELING COLD [None]
  - NAUSEA [None]
  - SOMNOLENCE [None]
  - TREMOR [None]
